FAERS Safety Report 4874251-6 (Version None)
Quarter: 2006Q1

REPORT INFORMATION
  Report Type: 
  Country: None (occurrence: None)
  Receive Date: 20060106
  Receipt Date: 20051005
  Transmission Date: 20060701
  Serious: Yes (Other)
  Sender: FDA-Public Use
  Company Number: US-MERCK-0510USA04539

PATIENT
  Age: 36 Year
  Sex: Female
  Weight: 61 kg

DRUGS (3)
  1. VIOXX [Suspect]
     Indication: BACK PAIN
     Route: 048
     Dates: start: 19990101
  2. PAXIL [Concomitant]
     Route: 048
  3. ULTRAM [Concomitant]
     Route: 065

REACTIONS (16)
  - ACCIDENT AT WORK [None]
  - ANXIETY [None]
  - BRUXISM [None]
  - CEREBROVASCULAR ACCIDENT [None]
  - CHEST PAIN [None]
  - DEPRESSION [None]
  - EAR INFECTION [None]
  - ENCEPHALOMALACIA [None]
  - HEMIANOPIA HOMONYMOUS [None]
  - INNER EAR DISORDER [None]
  - INTERVERTEBRAL DISC DEGENERATION [None]
  - INTERVERTEBRAL DISC PROTRUSION [None]
  - MIGRAINE [None]
  - SINUSITIS [None]
  - SLEEP DISORDER [None]
  - WEIGHT INCREASED [None]
